FAERS Safety Report 12772901 (Version 2)
Quarter: 2016Q4

REPORT INFORMATION
  Report Type: Spontaneous
  Country: ES (occurrence: ES)
  Receive Date: 20160922
  Receipt Date: 20161111
  Transmission Date: 20170207
  Serious: Yes (Other)
  Sender: FDA-Public Use
  Company Number: ES-AMGEN-ESPSP2016108557

PATIENT
  Age: 59 Year
  Sex: Male

DRUGS (6)
  1. ENBREL [Suspect]
     Active Substance: ETANERCEPT
     Indication: PSORIASIS
     Dosage: 50 MG, WEEKLY
     Route: 058
     Dates: start: 20160718
  2. MANIDON [Concomitant]
     Active Substance: VERAPAMIL HYDROCHLORIDE
     Indication: HYPERTENSION
     Dosage: 1 DF, 1X/DAY (1 DF OF 240, UNITS NOT PROVIDED, 1X/DAY)
  3. DOXAZOSINA NEO [Concomitant]
     Indication: HYPERTENSION
     Dosage: 8 MG, 1X/DAY
  4. ALIPZA [Concomitant]
     Active Substance: PITAVASTATIN
     Indication: BLOOD CHOLESTEROL
     Dosage: 1 MG, 1X/DAY
  5. LOSARTAN POTASSIUM/HYDROCHLOROTHIAZIDE [Concomitant]
     Active Substance: HYDROCHLOROTHIAZIDE\LOSARTAN POTASSIUM
     Indication: HYPERTENSION
     Dosage: 1 DF, 1X/DAY (1 DF OF 100/25, UNITS NOT PROVIDED, 1X/DAY)
  6. DAIVOBET [Concomitant]
     Active Substance: BETAMETHASONE DIPROPIONATE\CALCIPOTRIENE
     Indication: PSORIASIS
     Dosage: UNK, AS NEEDED (IT WAS BEING USED SPORADICALLY)

REACTIONS (2)
  - Polyp [Not Recovered/Not Resolved]
  - Therapy non-responder [Not Recovered/Not Resolved]

NARRATIVE: CASE EVENT DATE: 2016
